FAERS Safety Report 6770884-0 (Version None)
Quarter: 2010Q2

REPORT INFORMATION
  Report Type: 
  Country: None (occurrence: None)
  Receive Date: 20100615
  Receipt Date: 20100607
  Transmission Date: 20101027
  Serious: Yes (Other)
  Sender: FDA-Public Use
  Company Number: US-AMGEN-QUU416845

PATIENT
  Sex: Female

DRUGS (3)
  1. ENBREL [Suspect]
     Indication: RHEUMATOID ARTHRITIS
     Route: 058
     Dates: start: 20000101, end: 20100426
  2. PREDNISONE [Concomitant]
     Route: 048
  3. PRENATAL VITAMINS [Concomitant]
     Route: 048

REACTIONS (4)
  - ANTI-SS-A ANTIBODY POSITIVE [None]
  - ANTI-SS-B ANTIBODY POSITIVE [None]
  - PULMONARY OEDEMA [None]
  - RHEUMATOID ARTHRITIS [None]
